FAERS Safety Report 21737745 (Version 1)
Quarter: 2022Q4

REPORT INFORMATION
  Report Type: Spontaneous
  Country: US (occurrence: US)
  Receive Date: 20221216
  Receipt Date: 20221216
  Transmission Date: 20230113
  Serious: Yes (Life-Threatening, Hospitalization, Other)
  Sender: FDA-Public Use
  Company Number: US-MLMSERVICE-20221125-3941729-1

PATIENT
  Age: 43 Year
  Sex: Male

DRUGS (3)
  1. RITONAVIR [Interacting]
     Active Substance: RITONAVIR
     Indication: COVID-19
     Dosage: UNK
     Route: 065
  2. TACROLIMUS [Interacting]
     Active Substance: TACROLIMUS
     Indication: Product used for unknown indication
     Dosage: UNK
     Route: 065
  3. NIRMATRELVIR [Concomitant]
     Active Substance: NIRMATRELVIR
     Indication: COVID-19
     Dosage: UNK
     Route: 065

REACTIONS (4)
  - Drug interaction [Unknown]
  - Immunosuppressant drug level increased [Recovering/Resolving]
  - Acute kidney injury [Recovered/Resolved]
  - Hyperkalaemia [Unknown]
